FAERS Safety Report 4296970-5 (Version None)
Quarter: 2004Q1

REPORT INFORMATION
  Report Type: 
  Country: None (occurrence: None)
  Receive Date: 20040213
  Receipt Date: 20040202
  Transmission Date: 20041129
  Serious: Yes (Death, Hospitalization, Other)
  Sender: FDA-Public Use
  Company Number: 2002003991

PATIENT
  Age: 41 Day
  Sex: Male

DRUGS (8)
  1. SILDENAFIL (SILDENAFIL) [Suspect]
     Indication: PULMONARY HYPERTENSION
     Dosage: 16 MG (QID), ORAL
     Route: 048
     Dates: start: 20010311, end: 20011011
  2. DOMPERIDONE [Concomitant]
  3. OMEPRAZOLE [Concomitant]
  4. IRON [Concomitant]
  5. ALDACTAZIDE A (SPIRONOLACTONE, HYDROCHLOROTHIAZIDE) [Concomitant]
  6. CALCIUM CARBONATE [Concomitant]
  7. EPOPROSTENOL [Concomitant]
  8. NITRIC OXIDE [Concomitant]

REACTIONS (8)
  - CONDITION AGGRAVATED [None]
  - DIFFUSE ALVEOLAR DAMAGE [None]
  - DYSPLASIA [None]
  - INTERSTITIAL LUNG DISEASE [None]
  - PULMONARY HYPERTENSION [None]
  - PULMONARY INFARCTION [None]
  - RHABDOMYOMA [None]
  - SEPSIS [None]
